FAERS Safety Report 12493755 (Version 2)
Quarter: 2016Q3

REPORT INFORMATION
  Report Type: Report from Study
  Country: CZ (occurrence: CZ)
  Receive Date: 20160623
  Receipt Date: 20160816
  Transmission Date: 20161109
  Serious: Yes (Hospitalization)
  Sender: FDA-Public Use
  Company Number: CZ-JNJFOC-20160322295

PATIENT
  Age: 80 Year
  Sex: Female
  Weight: 73 kg

DRUGS (20)
  1. SIMETICONUM [Concomitant]
     Indication: FLATULENCE
     Route: 065
     Dates: start: 20150623, end: 20160406
  2. RIVAROXABAN [Suspect]
     Active Substance: RIVAROXABAN
     Indication: CEREBROVASCULAR ACCIDENT PROPHYLAXIS
     Route: 048
     Dates: start: 20150614, end: 20160310
  3. RILMENIDINE [Concomitant]
     Active Substance: RILMENIDINE
     Indication: HYPERTENSION
     Route: 065
     Dates: start: 20150624, end: 20160322
  4. ATORVASTATIN [Concomitant]
     Active Substance: ATORVASTATIN
     Route: 065
     Dates: start: 2013
  5. CLOPIDOGREL [Concomitant]
     Active Substance: CLOPIDOGREL BISULFATE
     Indication: HAEMORRHAGE
     Route: 065
     Dates: start: 20150612, end: 20160406
  6. DIGOXINUM [Concomitant]
     Indication: CARDIAC FAILURE
     Route: 065
     Dates: start: 20150623
  7. RIVAROXABAN [Suspect]
     Active Substance: RIVAROXABAN
     Indication: ATRIAL FIBRILLATION
     Route: 048
     Dates: start: 20160323, end: 20160406
  8. RIVAROXABAN [Suspect]
     Active Substance: RIVAROXABAN
     Indication: ATRIAL FIBRILLATION
     Route: 048
     Dates: start: 20150614, end: 20160310
  9. RAMIPRILUM [Concomitant]
     Indication: HYPERTENSION
     Route: 065
     Dates: start: 2013
  10. ALPRAZOLAMUM [Concomitant]
     Indication: ANXIOLYTIC THERAPY
     Route: 065
     Dates: start: 20150810
  11. BETAHISTINE DIHYDROCHLORIDE [Concomitant]
     Active Substance: BETAHISTINE
     Indication: VASODILATION PROCEDURE
     Route: 065
     Dates: start: 20151016, end: 20160406
  12. RIVAROXABAN [Suspect]
     Active Substance: RIVAROXABAN
     Indication: CEREBROVASCULAR ACCIDENT PROPHYLAXIS
     Route: 048
     Dates: start: 20160323, end: 20160406
  13. METOPROLOL. [Concomitant]
     Active Substance: METOPROLOL
     Indication: HYPERTENSION
     Route: 065
     Dates: start: 2013
  14. RILMENIDINE [Concomitant]
     Active Substance: RILMENIDINE
     Indication: HYPERTENSION
     Route: 065
     Dates: start: 2013, end: 20150623
  15. ALLOPURINOLUM [Concomitant]
     Indication: HYPERURICAEMIA
     Route: 065
     Dates: start: 20150810
  16. FUROSEMIDE. [Concomitant]
     Active Substance: FUROSEMIDE
     Indication: CARDIAC FAILURE
     Route: 065
     Dates: start: 2013
  17. KALIUM CHLORATUM [Concomitant]
     Active Substance: POTASSIUM CHLORIDE
     Indication: HYPOKALAEMIA
     Route: 065
     Dates: start: 20150623, end: 20160310
  18. SPIRONOLACTONUM [Concomitant]
     Indication: HYPOKALAEMIA
     Route: 065
     Dates: start: 20160316
  19. CLOPIDOGREL [Concomitant]
     Active Substance: CLOPIDOGREL BISULFATE
     Indication: ANTIPLATELET THERAPY
     Route: 065
     Dates: start: 20150612, end: 20160406
  20. LEVOTHYROXINUM [Concomitant]
     Indication: HYPOTHYROIDISM
     Route: 065
     Dates: start: 2013

REACTIONS (2)
  - Gastric ulcer [Recovered/Resolved]
  - Gastric ulcer [Recovered/Resolved]

NARRATIVE: CASE EVENT DATE: 20160309
